FAERS Safety Report 23256035 (Version 1)
Quarter: 2023Q4

REPORT INFORMATION
  Report Type: Report from Study
  Country: DE (occurrence: DE)
  Receive Date: 20231204
  Receipt Date: 20231204
  Transmission Date: 20240110
  Serious: Yes (Hospitalization, Other)
  Sender: FDA-Public Use
  Company Number: DE-JNJFOC-20220831283

PATIENT
  Sex: Female

DRUGS (8)
  1. SIMPONI [Suspect]
     Active Substance: GOLIMUMAB
     Indication: Axial spondyloarthritis
     Route: 058
     Dates: start: 20200117
  2. HUMIRA [Concomitant]
     Active Substance: ADALIMUMAB
     Dates: start: 20190319
  3. NAPROXEN [Concomitant]
     Active Substance: NAPROXEN
     Dates: start: 20180901
  4. IMRALDI [Concomitant]
     Active Substance: ADALIMUMAB
     Dates: start: 20190402
  5. PREDNISOLONE [Concomitant]
     Active Substance: PREDNISOLONE
     Route: 065
     Dates: start: 20211130
  6. CHOLECALCIFEROL [Concomitant]
     Active Substance: CHOLECALCIFEROL
     Route: 065
  7. BISOPROLOL [Concomitant]
     Active Substance: BISOPROLOL\BISOPROLOL FUMARATE
     Indication: Hypertension
  8. CANDESARTAN [Concomitant]
     Active Substance: CANDESARTAN
     Indication: Dyslipidaemia

REACTIONS (6)
  - Hypertensive crisis [Unknown]
  - Gastritis erosive [Unknown]
  - Acute myocardial infarction [Recovered/Resolved]
  - Aortic valve stenosis [Not Recovered/Not Resolved]
  - Intervertebral disc protrusion [Unknown]
  - Bronchitis [Unknown]

NARRATIVE: CASE EVENT DATE: 20211211
